FAERS Safety Report 4459487-0 (Version None)
Quarter: 2004Q3

REPORT INFORMATION
  Report Type: 
  Country: None (occurrence: None)
  Receive Date: 20040910
  Receipt Date: 20040617
  Transmission Date: 20050211
  Serious: Yes (Other)
  Sender: FDA-Public Use
  Company Number: 2004211810US

PATIENT
  Age: 68 Year
  Sex: Male

DRUGS (7)
  1. BEXTRA [Suspect]
     Indication: BACK PAIN
     Dosage: 20 MG, PRN, ORAL
     Route: 048
  2. NORVASC [Concomitant]
  3. LIPITOR [Concomitant]
  4. LASIX [Concomitant]
  5. AVAPRO [Concomitant]
  6. GLUCOPHAGE [Concomitant]
  7. QUININE (QUININE) [Concomitant]

REACTIONS (1)
  - CARDIAC FAILURE CONGESTIVE [None]
